FAERS Safety Report 7652955-X (Version None)
Quarter: 2011Q3

REPORT INFORMATION
  Report Type: 
  Country: None (occurrence: None)
  Receive Date: 20110803
  Receipt Date: 20110727
  Transmission Date: 20111222
  Serious: Yes (Disabling)
  Sender: FDA-Public Use
  Company Number: EC-ROCHE-793012

PATIENT
  Age: 60 Year
  Sex: Female

DRUGS (2)
  1. ACTEMRA [Suspect]
     Route: 042
     Dates: start: 20101111, end: 20110611
  2. METHOTREXATE [Concomitant]
     Route: 048
     Dates: start: 20101101

REACTIONS (2)
  - DEMYELINATION [None]
  - HEADACHE [None]
